FAERS Safety Report 9995003 (Version 1)
Quarter: 2014Q1

REPORT INFORMATION
  Report Type: Spontaneous
  Country: US (occurrence: None)
  Receive Date: 20140225
  Receipt Date: 20140225
  Transmission Date: 20141002
  Serious: Yes (Other)
  Sender: FDA-Public Use
  Company Number: 2013-301

PATIENT
  Age: 60 Year
  Sex: Female

DRUGS (2)
  1. PRIALT [Suspect]
     Indication: POST LAMINECTOMY SYNDROME
     Dosage: ONCE/HOUR
     Route: 037
  2. MORPHINE SULFATE (MORPHINE SULFATE) INJECTION [Suspect]
     Indication: POST LAMINECTOMY SYNDROME
     Dosage: ONCE/HOUR
     Route: 037

REACTIONS (8)
  - Loss of consciousness [None]
  - Heart rate increased [None]
  - Neuropathy peripheral [None]
  - Movement disorder [None]
  - Paraesthesia [None]
  - Dizziness [None]
  - Muscle spasms [None]
  - Condition aggravated [None]
